FAERS Safety Report 18985556 (Version 1)
Quarter: 2021Q1

REPORT INFORMATION
  Report Type: Other
  Country: GB (occurrence: GB)
  Receive Date: 20210309
  Receipt Date: 20210309
  Transmission Date: 20210420
  Serious: Yes (Disabling)
  Sender: FDA-Public Use
  Company Number: GB-GLENMARK PHARMACEUTICALS-2021GMK052568

PATIENT

DRUGS (1)
  1. ROSUVASTATIN CALCIUM. [Suspect]
     Active Substance: ROSUVASTATIN CALCIUM
     Indication: BLOOD CHOLESTEROL INCREASED
     Dosage: 5 MG ONCE A DAY IN EVENING
     Route: 048
     Dates: start: 20201101

REACTIONS (3)
  - Migraine [Not Recovered/Not Resolved]
  - Vomiting [Unknown]
  - Medication error [Unknown]

NARRATIVE: CASE EVENT DATE: 20201121
